FAERS Safety Report 4976685-8 (Version None)
Quarter: 2006Q2

REPORT INFORMATION
  Report Type: 
  Country: None (occurrence: None)
  Receive Date: 20060412
  Receipt Date: 20060328
  Transmission Date: 20061013
  Serious: Yes (Hospitalization)
  Sender: FDA-Public Use
  Company Number: WAES 0603USA04315

PATIENT
  Age: 66 Year
  Sex: Female
  Weight: 57.1532 kg

DRUGS (20)
  1. ZOCOR [Suspect]
     Indication: HYPERCHOLESTEROLAEMIA
     Dosage: 80 MG/DAILY/PO
     Route: 048
     Dates: start: 19960326, end: 20060207
  2. COREG [Suspect]
     Indication: CARDIAC FAILURE
     Dosage: SEE IMAGE
     Route: 048
     Dates: start: 20040317, end: 20051001
  3. COREG [Suspect]
     Indication: CARDIAC FAILURE
     Dosage: SEE IMAGE
     Route: 048
     Dates: start: 20051030
  4. . [Concomitant]
  5. CLARITHROMYCIN [Suspect]
     Indication: SINUSITIS
     Dosage: 500 MG/BID/PO
     Route: 048
     Dates: start: 20060202, end: 20060206
  6. ASPIRIN [Concomitant]
  7. CALCIUM GLUCONATE [Concomitant]
  8. DIGOXIN [Concomitant]
  9. DIPHENHYDRAMINE HYDROCHLORIDE [Concomitant]
  10. ENALAPRIL MALEATE [Concomitant]
  11. FUROSEMIDE [Concomitant]
  12. GLIMEPIRIDE [Concomitant]
  13. INSULIN HUMAN [Concomitant]
  14. LORATADINE [Concomitant]
  15. LORAZEPAM [Concomitant]
  16. METFORMIN HYDROCHLORIDE [Concomitant]
  17. NITROGLYCERIN [Concomitant]
  18. POTASSIUM CHLORIDE [Concomitant]
  19. SERTRALINE HYDROCHLORIDE [Concomitant]
  20. VITAMINS [Concomitant]

REACTIONS (10)
  - ANGIOPATHY [None]
  - ATRIAL FIBRILLATION [None]
  - BLOOD POTASSIUM DECREASED [None]
  - CARDIAC FAILURE CONGESTIVE [None]
  - CARDIOACTIVE DRUG LEVEL INCREASED [None]
  - DRUG INTERACTION [None]
  - LOBAR PNEUMONIA [None]
  - RESPIRATORY DISTRESS [None]
  - RHABDOMYOLYSIS [None]
  - WHITE BLOOD CELL COUNT INCREASED [None]
